FAERS Safety Report 8447778-8 (Version None)
Quarter: 2012Q2

REPORT INFORMATION
  Report Type: 
  Country: None (occurrence: None)
  Receive Date: 20120619
  Receipt Date: 20120608
  Transmission Date: 20120825
  Serious: Yes (Hospitalization)
  Sender: FDA-Public Use
  Company Number: US-GENZYME-CAMP-1002279

PATIENT
  Sex: Female
  Weight: 61.4 kg

DRUGS (6)
  1. ALEMTUZUMAB [Suspect]
     Dosage: UNK
     Route: 042
     Dates: start: 20090330, end: 20090401
  2. ALEMTUZUMAB [Suspect]
     Dosage: UNK
     Route: 042
     Dates: start: 20090403, end: 20090403
  3. ALEMTUZUMAB [Suspect]
     Indication: MULTIPLE SCLEROSIS
     Dosage: UNK
     Route: 042
     Dates: start: 20090327, end: 20090327
  4. KEFLEX [Concomitant]
     Indication: URINARY TRACT INFECTION
     Dosage: 500 MG, BID
     Route: 048
     Dates: start: 20120514
  5. BACTRIM [Concomitant]
     Indication: ADVERSE EVENT
     Dosage: 400 MG, QD
     Route: 048
     Dates: start: 20120529
  6. ZOFRAN [Concomitant]
     Indication: ADVERSE EVENT
     Dosage: 8 MG, PRN
     Route: 048
     Dates: start: 20120606

REACTIONS (1)
  - URINARY TRACT INFECTION [None]
